FAERS Safety Report 8613917 (Version 5)
Quarter: 2013Q2

REPORT INFORMATION
  Report Type: Report from Study
  Country: CA (occurrence: CA)
  Receive Date: 20120614
  Receipt Date: 20130422
  Transmission Date: 20140414
  Serious: Yes (Death, Hospitalization, Other)
  Sender: FDA-Public Use
  Company Number: PHHY2012CA050028

PATIENT
  Age: 73 Year
  Sex: Female

DRUGS (1)
  1. SANDOSTATIN LAR [Suspect]
     Indication: ANGIODYSPLASIA
     Dosage: 20 MG, ONCE A MONTH
     Route: 030
     Dates: start: 20120203

REACTIONS (9)
  - Death [Fatal]
  - Back pain [Unknown]
  - Atrial fibrillation [Unknown]
  - Dyspnoea [Unknown]
  - Rib fracture [Unknown]
  - Traumatic lung injury [Unknown]
  - Blood pressure inadequately controlled [Unknown]
  - Blood pressure decreased [Unknown]
  - Pain [Unknown]
